FAERS Safety Report 16864768 (Version 1)
Quarter: 2019Q3

REPORT INFORMATION
  Report Type: Spontaneous
  Country: US (occurrence: US)
  Receive Date: 20190929
  Receipt Date: 20190929
  Transmission Date: 20191005
  Serious: No
  Sender: FDA-Public Use
  Company Number: US-TEVA-2019-US-1116449

PATIENT
  Age: 59 Year
  Sex: Female

DRUGS (1)
  1. AJOVY [Suspect]
     Active Substance: FREMANEZUMAB-VFRM
     Indication: MIGRAINE
     Dosage: PATIENT WAS ON AJOVY FOR 5 INJECTIONS
     Route: 058

REACTIONS (2)
  - Migraine [Unknown]
  - Therapeutic product effect decreased [Unknown]
